FAERS Safety Report 10881354 (Version 4)
Quarter: 2015Q3

REPORT INFORMATION
  Report Type: Spontaneous
  Country: US (occurrence: US)
  Receive Date: 20150303
  Receipt Date: 20150909
  Transmission Date: 20151125
  Serious: Yes (Life-Threatening, Hospitalization, Other)
  Sender: FDA-Public Use
  Company Number: US-BAYER-2015-031789

PATIENT
  Age: 27 Year
  Sex: Female
  Weight: 45.35 kg

DRUGS (3)
  1. MIRENA [Suspect]
     Active Substance: LEVONORGESTREL
     Indication: CONTRACEPTION
     Dosage: 20 MCG/24HR, CONT
     Route: 015
     Dates: start: 200501, end: 200910
  2. EFFEXOR [Concomitant]
     Active Substance: VENLAFAXINE HYDROCHLORIDE
     Indication: DEPRESSION
     Dosage: UNK
     Dates: start: 2006
  3. MIRENA [Suspect]
     Active Substance: LEVONORGESTREL
     Indication: CONTRACEPTION
     Dosage: 20 MCG/24HR, CONT
     Route: 015
     Dates: start: 20111114, end: 20130712

REACTIONS (9)
  - Ectopic pregnancy with contraceptive device [None]
  - Device issue [None]
  - Uterine perforation [None]
  - Device use error [None]
  - Abdominal pain [None]
  - Injury [None]
  - General physical health deterioration [None]
  - Infection [None]
  - Drug ineffective [None]

NARRATIVE: CASE EVENT DATE: 200910
